FAERS Safety Report 8103857-6 (Version None)
Quarter: 2012Q1

REPORT INFORMATION
  Report Type: 
  Country: None (occurrence: None)
  Receive Date: 20120201
  Receipt Date: 20120123
  Transmission Date: 20120608
  Serious: Yes (Other)
  Sender: FDA-Public Use
  Company Number: PHHY2012FR005154

PATIENT
  Sex: Male
  Weight: 78 kg

DRUGS (3)
  1. ALISKIREN [Suspect]
     Indication: PROTEINURIA
  2. ALISKIREN [Suspect]
     Indication: HYPERTENSION
     Dosage: 300 MG/DAY
     Dates: start: 20110421, end: 20120110
  3. CLOPIDOGREL [Concomitant]
     Dosage: 75 MG
     Dates: start: 20090717

REACTIONS (1)
  - NERVOUS SYSTEM DISORDER [None]
